FAERS Safety Report 8507847-0 (Version None)
Quarter: 2012Q3

REPORT INFORMATION
  Report Type: 
  Country: None (occurrence: None)
  Receive Date: 20120713
  Receipt Date: 20120712
  Transmission Date: 20120928
  Serious: Yes (Death, Other)
  Sender: FDA-Public Use
  Company Number: PHHY2011NL098526

PATIENT
  Sex: Male

DRUGS (7)
  1. ZOMETA [Suspect]
     Dosage: 4 MG/5 ML ONCE PER 42 DAYS
     Dates: start: 20120424
  2. ZOMETA [Suspect]
     Dosage: 4 MG/100 ML ONCE PER 42 DAYS
     Dates: start: 20120523
  3. ZOMETA [Suspect]
     Dosage: 4 MG/5 ML ONCE PER 42 DAYS
     Dates: start: 20120620
  4. ZOMETA [Suspect]
     Dosage: 4 MG/5 ML ONCE PER 42 DAYS
     Dates: start: 20111108
  5. ZOMETA [Suspect]
     Indication: PROSTATE CANCER METASTATIC
     Dosage: 4 MG/5 ML ONCE PER 42 DAYS
     Dates: start: 20110114
  6. ZOMETA [Suspect]
     Dosage: 4 MG/5 ML ONCE PER 42 DAYS
     Dates: start: 20110923
  7. ZOMETA [Suspect]
     Dosage: 4 MG/5 ML ONCE PER 42 DAYS
     Dates: start: 20120114

REACTIONS (10)
  - GENERAL PHYSICAL CONDITION ABNORMAL [None]
  - BONE PAIN [None]
  - PYREXIA [None]
  - NEOPLASM MALIGNANT [None]
  - ANURIA [None]
  - DIPLOPIA [None]
  - JAUNDICE [None]
  - FATIGUE [None]
  - NEOPLASM PROGRESSION [None]
  - MALAISE [None]
